FAERS Safety Report 19661964 (Version 1)
Quarter: 2021Q3

REPORT INFORMATION
  Report Type: Spontaneous
  Country: US (occurrence: US)
  Receive Date: 20210805
  Receipt Date: 20210805
  Transmission Date: 20211014
  Serious: Yes (Other)
  Sender: FDA-Public Use
  Company Number: US-ACCORD-207805

PATIENT
  Age: 64 Year
  Sex: Female
  Weight: 87.04 kg

DRUGS (22)
  1. DOCETAXEL ACCORD [Suspect]
     Active Substance: DOCETAXEL
     Indication: NON-SMALL CELL LUNG CANCER
     Dates: start: 20111221, end: 20201021
  2. K?TAB [Concomitant]
     Active Substance: POTASSIUM CHLORIDE
     Dosage: STRENGTH: 10 MEQ.
  3. CYRAMZA [Suspect]
     Active Substance: RAMUCIRUMAB
     Indication: NON-SMALL CELL LUNG CANCER
     Dates: start: 20111221, end: 20201021
  4. LASIX [Concomitant]
     Active Substance: FUROSEMIDE
     Dosage: STRENGTH:20 MG
  5. ZOCOR [Concomitant]
     Active Substance: SIMVASTATIN
     Dosage: STRENGTH: 20 MG.
     Dates: start: 20100430
  6. PLAVIX [Concomitant]
     Active Substance: CLOPIDOGREL BISULFATE
     Dates: start: 20100426
  7. HYDROCHLOROTHIAZIDE. [Concomitant]
     Active Substance: HYDROCHLOROTHIAZIDE
     Dosage: STRENGTH: 25 MG
  8. CLARITIN [Concomitant]
     Active Substance: LORATADINE
     Dosage: STRENGTH:10 MG.
  9. METFORMIN [Concomitant]
     Active Substance: METFORMIN HYDROCHLORIDE
     Dosage: STRENGTH: 500MG
  10. ZESTRIL [Concomitant]
     Active Substance: LISINOPRIL
     Dosage: STRENGTH:40 MG.
     Dates: start: 20100430
  11. SIMVASTATIN. [Concomitant]
     Active Substance: SIMVASTATIN
     Dosage: STRENGTH: 20 MG.
  12. NORVASC [Concomitant]
     Active Substance: AMLODIPINE BESYLATE
     Dosage: STRENGTH: 5MG., 10 MG.
     Dates: start: 20100428
  13. RITALIN [Concomitant]
     Active Substance: METHYLPHENIDATE HYDROCHLORIDE
     Dosage: STRENGTH:10 MG
     Dates: start: 20100609
  14. ANTIVERT [Concomitant]
     Active Substance: MECLIZINE HYDROCHLORIDE
     Dosage: STRENGTH:25 MG.
  15. DEXAMETHASONE. [Concomitant]
     Active Substance: DEXAMETHASONE
  16. LISINOPRIL. [Concomitant]
     Active Substance: LISINOPRIL
     Dosage: STRENGTH: 40 MG.
  17. WELLBUTRIN [Concomitant]
     Active Substance: BUPROPION HYDROCHLORIDE
     Dosage: STRENGTH:150 MG.
     Dates: start: 20100616
  18. ONDANSETRON [Concomitant]
     Active Substance: ONDANSETRON
  19. BIOTENE NOS [Concomitant]
     Active Substance: CETYLPYRIDINIUM CHLORIDE OR SODIUM FLUORIDE OR SODIUM MONOFLUOROPHOSPHATE OR GLUCOSE OXIDASE\LACTOFERRIN\LACTOPEROXIDASE BOVINE\LYSOZYME
  20. PLAVIX [Concomitant]
     Active Substance: CLOPIDOGREL BISULFATE
     Dosage: STRENGTH:75 MG.
  21. GLIPIZIDE. [Concomitant]
     Active Substance: GLIPIZIDE
     Dosage: STRENGTH:5 MG.
  22. RESTORIL [Concomitant]
     Active Substance: TEMAZEPAM
     Dosage: STRENGTH: 30 MG

REACTIONS (1)
  - Alopecia [Not Recovered/Not Resolved]

NARRATIVE: CASE EVENT DATE: 20120601
